FAERS Safety Report 11771975 (Version 2)
Quarter: 2015Q4

REPORT INFORMATION
  Report Type: Report from Study
  Country: BR (occurrence: BR)
  Receive Date: 20151124
  Receipt Date: 20151209
  Transmission Date: 20160304
  Serious: Yes (Hospitalization, Other)
  Sender: FDA-Public Use
  Company Number: PHHY2015BR151427

PATIENT
  Sex: Female
  Weight: 74 kg

DRUGS (2)
  1. DIOVAN AMLO FIX [Suspect]
     Active Substance: AMLODIPINE\VALSARTAN
     Indication: HYPERTENSION
     Dosage: 2 DF, QD (10 YEARS AGO)
     Route: 048
  2. DIOVAN AMLO FIX [Suspect]
     Active Substance: AMLODIPINE\VALSARTAN
     Dosage: 1 DF, QD (2 YEARS AGO)
     Route: 048

REACTIONS (9)
  - Exophthalmos [Not Recovered/Not Resolved]
  - Hyperthyroidism [Recovering/Resolving]
  - Disorder of globe [Unknown]
  - Hypothyroidism [Recovering/Resolving]
  - Myocardial infarction [Recovered/Resolved]
  - Feelings of worthlessness [Unknown]
  - Fibromyalgia [Not Recovered/Not Resolved]
  - Eye disorder [Unknown]
  - Memory impairment [Unknown]

NARRATIVE: CASE EVENT DATE: 20150711
